FAERS Safety Report 9200467 (Version 5)
Quarter: 2014Q1

REPORT INFORMATION
  Report Type: Report from Study
  Country: US (occurrence: US)
  Receive Date: 20130329
  Receipt Date: 20140214
  Transmission Date: 20141002
  Serious: Yes (Life-Threatening, Hospitalization, Other)
  Sender: FDA-Public Use
  Company Number: US-US-EMD SERONO, INC.-7201556

PATIENT
  Age: 54 Year
  Sex: Female
  Weight: 78 kg

DRUGS (5)
  1. REBIF [Suspect]
     Indication: MULTIPLE SCLEROSIS
     Route: 058
     Dates: start: 20120707
  2. DILAUDID /00080902/ [Suspect]
     Indication: PAIN
  3. LIPITOR [Concomitant]
     Indication: BLOOD CHOLESTEROL
     Dates: end: 201303
  4. CALCIUM                            /00009901/ [Concomitant]
     Indication: OSTEOPOROSIS PROPHYLAXIS
     Dates: end: 201303
  5. ATENOLOL [Concomitant]
     Indication: HYPERTENSION

REACTIONS (5)
  - Respiratory depression [Recovering/Resolving]
  - Nephrolithiasis [Recovering/Resolving]
  - Pain in extremity [Unknown]
  - Multiple sclerosis relapse [Recovering/Resolving]
  - Injection site erythema [Unknown]
